FAERS Safety Report 6898571-9 (Version None)
Quarter: 2010Q3

REPORT INFORMATION
  Report Type: 
  Country: None (occurrence: None)
  Receive Date: 20100802
  Receipt Date: 20071030
  Transmission Date: 20110219
  Serious: No
  Sender: FDA-Public Use
  Company Number: US-PFIZER INC-2007091060

PATIENT
  Sex: Male
  Weight: 62.3 kg

DRUGS (4)
  1. LYRICA [Suspect]
     Indication: ARTHRALGIA
     Route: 048
     Dates: start: 20071025, end: 20071027
  2. LYRICA [Suspect]
     Indication: FIBROMYALGIA
  3. ALL OTHER THERAPEUTIC PRODUCTS [Concomitant]
  4. STEROID ANTIBACTERIALS [Concomitant]

REACTIONS (1)
  - FEELING DRUNK [None]
